FAERS Safety Report 16128427 (Version 1)
Quarter: 2019Q1

REPORT INFORMATION
  Report Type: Spontaneous
  Country: PL (occurrence: PL)
  Receive Date: 20190328
  Receipt Date: 20190328
  Transmission Date: 20190418
  Serious: Yes (Other)
  Sender: FDA-Public Use
  Company Number: PL-SA-2019SA084579

PATIENT
  Age: 72 Year
  Sex: Male

DRUGS (13)
  1. FINASTERIDE. [Suspect]
     Active Substance: FINASTERIDE
     Indication: POLYURIA
  2. FINASTERIDE. [Suspect]
     Active Substance: FINASTERIDE
     Indication: MICTURITION URGENCY
  3. TAMSULOSIN HYDROCHLORIDE. [Suspect]
     Active Substance: TAMSULOSIN HYDROCHLORIDE
     Indication: MICTURITION URGENCY
  4. FINASTERIDE. [Suspect]
     Active Substance: FINASTERIDE
     Indication: NOCTURIA
  5. SOLIFENACIN [Suspect]
     Active Substance: SOLIFENACIN
     Dosage: UNK
  6. TAMSULOSIN HYDROCHLORIDE. [Suspect]
     Active Substance: TAMSULOSIN HYDROCHLORIDE
     Indication: POLYURIA
  7. TAMSULOSIN HYDROCHLORIDE. [Suspect]
     Active Substance: TAMSULOSIN HYDROCHLORIDE
     Indication: BENIGN PROSTATIC HYPERPLASIA
     Dosage: UNK
  8. FINASTERIDE. [Suspect]
     Active Substance: FINASTERIDE
     Indication: BENIGN PROSTATIC HYPERPLASIA
     Dosage: UNK
  9. FINASTERIDE. [Suspect]
     Active Substance: FINASTERIDE
     Indication: LOWER URINARY TRACT SYMPTOMS
  10. TAMSULOSIN HYDROCHLORIDE. [Suspect]
     Active Substance: TAMSULOSIN HYDROCHLORIDE
     Indication: NOCTURIA
  11. TIALORID [AMILORIDE HYDROCHLORIDE;HYDROCHLOROTHIAZIDE] [Concomitant]
  12. PRESTARIUM [PERINDOPRIL] [Concomitant]
  13. TAMSULOSIN HYDROCHLORIDE. [Suspect]
     Active Substance: TAMSULOSIN HYDROCHLORIDE
     Indication: LOWER URINARY TRACT SYMPTOMS

REACTIONS (3)
  - Obesity [Unknown]
  - Drug ineffective [Unknown]
  - Bladder cancer [Unknown]
